FAERS Safety Report 21949716 (Version 1)
Quarter: 2023Q1

REPORT INFORMATION
  Report Type: Spontaneous
  Country: US (occurrence: None)
  Receive Date: 20230202
  Receipt Date: 20230202
  Transmission Date: 20230417
  Serious: No
  Sender: FDA-Public Use
  Company Number: None

PATIENT
  Age: 37 Year
  Sex: Male
  Weight: 78.75 kg

DRUGS (6)
  1. ACD-A [Suspect]
     Active Substance: ANHYDROUS CITRIC ACID\DEXTROSE MONOHYDRATE\SODIUM CITRATE
     Indication: Blood donation
     Dosage: FREQUENCY : ONCE;?
     Route: 042
  2. CITALOPRAM [Concomitant]
     Active Substance: CITALOPRAM HYDROBROMIDE
  3. CYCLOSPORINE [Concomitant]
     Active Substance: CYCLOSPORINE
  4. cyclobenaprine [Concomitant]
  5. INDOMETHACIN [Concomitant]
     Active Substance: INDOMETHACIN
  6. IBUPROFEN [Concomitant]
     Active Substance: IBUPROFEN

REACTIONS (5)
  - Movement disorder [None]
  - Pain [None]
  - Discomfort [None]
  - Muscle spasms [None]
  - Injection site pain [None]

NARRATIVE: CASE EVENT DATE: 20221220
